FAERS Safety Report 7832027-1 (Version None)
Quarter: 2011Q4

REPORT INFORMATION
  Report Type: 
  Country: None (occurrence: None)
  Receive Date: 20111021
  Receipt Date: 20111012
  Transmission Date: 20120403
  Serious: Yes (Hospitalization)
  Sender: FDA-Public Use
  Company Number: US-ASTRAZENECA-2011SE61373

PATIENT
  Age: 93 Year
  Sex: Female
  Weight: 63.5 kg

DRUGS (11)
  1. SEROQUEL [Suspect]
     Indication: AGITATION
     Route: 048
  2. AROCEP [Concomitant]
  3. SEROQUEL [Suspect]
     Route: 048
  4. SEROQUEL [Suspect]
     Indication: RESTLESSNESS
     Route: 048
  5. SEROQUEL [Suspect]
     Route: 048
  6. SEROQUEL [Suspect]
     Route: 048
  7. XANAX [Concomitant]
  8. SEROQUEL [Suspect]
     Route: 048
  9. VITAMIN D [Concomitant]
  10. SEROQUEL [Suspect]
     Route: 048
  11. SEROQUEL [Suspect]
     Route: 048

REACTIONS (6)
  - URINARY TRACT INFECTION [None]
  - DEMENTIA ALZHEIMER'S TYPE [None]
  - DRUG INEFFECTIVE FOR UNAPPROVED INDICATION [None]
  - AGITATION [None]
  - RESTLESSNESS [None]
  - OFF LABEL USE [None]
